FAERS Safety Report 6050707-8 (Version None)
Quarter: 2009Q1

REPORT INFORMATION
  Report Type: 
  Country: None (occurrence: None)
  Receive Date: 20090126
  Receipt Date: 20090114
  Transmission Date: 20090719
  Serious: Yes (Death, Life-Threatening, Disabling, Other)
  Sender: FDA-Public Use
  Company Number: SG-PFIZER INC-2008093421

PATIENT

DRUGS (24)
  1. BLINDED *PLACEBO [Suspect]
     Indication: SYSTEMIC CANDIDA
     Dosage: 200 MG, 1X/DAY
     Route: 042
     Dates: start: 20081101, end: 20081101
  2. BLINDED ANIDULAFUNGIN [Suspect]
     Indication: SYSTEMIC CANDIDA
     Dosage: 200 MG, 1X/DAY
     Route: 042
     Dates: start: 20081101, end: 20081101
  3. BLINDED *PLACEBO [Suspect]
     Dosage: 100 MG, 1X/DAY
     Route: 042
     Dates: start: 20081102, end: 20081102
  4. BLINDED ANIDULAFUNGIN [Suspect]
     Dosage: 100 MG, 1X/DAY
     Route: 042
     Dates: start: 20081102, end: 20081102
  5. BLINDED *PLACEBO [Suspect]
     Dosage: 100 MG, 1X/DAY
     Route: 042
     Dates: start: 20081106, end: 20081109
  6. BLINDED ANIDULAFUNGIN [Suspect]
     Dosage: 100 MG, 1X/DAY
     Route: 042
     Dates: start: 20081106, end: 20081109
  7. VORICONAZOLE [Suspect]
     Indication: ASPERGILLOSIS
     Dosage: 300 MG, 2X/DAY
     Route: 042
     Dates: start: 20081101, end: 20081109
  8. MEROPENEM [Concomitant]
     Route: 042
     Dates: start: 20081020, end: 20081030
  9. VANCOMYCIN [Concomitant]
     Route: 042
     Dates: start: 20081028
  10. ACYCLOVIR [Concomitant]
     Route: 048
     Dates: start: 20081020, end: 20081103
  11. FLUCONAZOLE [Concomitant]
     Route: 048
     Dates: start: 20081020, end: 20081031
  12. ACETAMINOPHEN [Concomitant]
     Route: 048
     Dates: start: 20081020
  13. CHLORHEXIDINE GLUCONATE [Concomitant]
     Route: 061
     Dates: start: 20081020
  14. BACTROBAN [Concomitant]
     Route: 061
     Dates: start: 20081022, end: 20081101
  15. MICONAZOLE [Concomitant]
     Route: 061
     Dates: start: 20081023
  16. OMEPRAZOLE [Concomitant]
     Route: 048
     Dates: start: 20081024
  17. MAGNESIUM SULFATE [Concomitant]
     Route: 048
     Dates: start: 20081028
  18. TRAMADOL HCL [Concomitant]
     Route: 048
     Dates: start: 20081028
  19. METOCLOPRAMIDE [Concomitant]
     Route: 048
     Dates: start: 20081028
  20. FLUIMUCIL [Concomitant]
     Route: 048
     Dates: start: 20081029, end: 20081104
  21. LEVOFLOXACIN [Concomitant]
     Route: 048
     Dates: start: 20081030, end: 20081103
  22. ALL OTHER THERAPEUTIC PRODUCTS [Concomitant]
     Route: 042
     Dates: start: 20081029, end: 20081029
  23. MEPERIDINE HCL [Concomitant]
     Route: 042
     Dates: start: 20081031, end: 20081031
  24. DEXAMETHASONE [Concomitant]
     Route: 042
     Dates: start: 20081031, end: 20081031

REACTIONS (7)
  - ATRIAL FIBRILLATION [None]
  - BRONCHOSPASM [None]
  - ENCEPHALOPATHY [None]
  - ILEUS PARALYTIC [None]
  - PNEUMONIA [None]
  - RENAL FAILURE ACUTE [None]
  - RESPIRATORY FAILURE [None]
